FAERS Safety Report 5531629-5 (Version None)
Quarter: 2007Q4

REPORT INFORMATION
  Report Type: 
  Country: None (occurrence: None)
  Receive Date: 20071128
  Receipt Date: 20071112
  Transmission Date: 20080405
  Serious: Yes (Hospitalization)
  Sender: FDA-Public Use
  Company Number: S07-GER-06088-01

PATIENT
  Age: 77 Year
  Sex: Male

DRUGS (10)
  1. CITALOPRAM HYDROBROMIDE [Suspect]
     Indication: VASCULAR DEMENTIA
     Dosage: 10 MG QD PO
     Route: 048
     Dates: start: 20070322, end: 20070403
  2. CITALOPRAM HYDROBROMIDE [Suspect]
     Indication: VASCULAR DEMENTIA
     Dosage: 20 MG QD PO
     Route: 048
     Dates: start: 20070320, end: 20070321
  3. RAMIPRIL [Suspect]
     Dosage: 5 MG QD PO
     Route: 048
     Dates: start: 20070323, end: 20070403
  4. RAMIPRIL [Suspect]
     Dosage: 2.5 MG QD PO
     Route: 048
     Dates: end: 20070322
  5. GALANTAMINE HYDROBROMIDE [Concomitant]
  6. ASPIRIN [Concomitant]
  7. FOLIC ACID [Concomitant]
  8. ZOLPIDEM TARTRATE [Concomitant]
  9. NACL (SODIUM CHLORIDE) [Concomitant]
  10. ABILIFY [Concomitant]

REACTIONS (7)
  - DEHYDRATION [None]
  - ENURESIS [None]
  - GENERAL PHYSICAL HEALTH DETERIORATION [None]
  - HYPONATRAEMIA [None]
  - LEUKOCYTOSIS [None]
  - PROTEINURIA [None]
  - PYREXIA [None]
